FAERS Safety Report 24797400 (Version 3)
Quarter: 2025Q1

REPORT INFORMATION
  Report Type: Spontaneous
  Country: US (occurrence: US)
  Receive Date: 20250102
  Receipt Date: 20250213
  Transmission Date: 20250409
  Serious: Yes (Other)
  Sender: BLUEPRINT MEDICINES
  Company Number: US-Blueprint Medicines Corporation-2024-AER-00033

PATIENT
  Age: 43 Year
  Sex: Female

DRUGS (2)
  1. AYVAKIT [Suspect]
     Active Substance: AVAPRITINIB
     Indication: Systemic mastocytosis
     Route: 048
     Dates: start: 20241128
  2. AYVAKIT [Suspect]
     Active Substance: AVAPRITINIB
     Route: 065
     Dates: start: 20241128

REACTIONS (10)
  - Neuropathy peripheral [Unknown]
  - Rash macular [Not Recovered/Not Resolved]
  - Rash [Unknown]
  - Bone pain [Unknown]
  - Pruritus [Unknown]
  - Headache [Unknown]
  - Periorbital swelling [Recovering/Resolving]
  - Fatigue [Unknown]
  - Pain [Unknown]
  - Feeling abnormal [Unknown]
